FAERS Safety Report 8818193 (Version 1)
Quarter: 2012Q4

REPORT INFORMATION
  Report Type: 
  Country: US (occurrence: US)
  Receive Date: 20121001
  Receipt Date: 20121001
  Transmission Date: 20130627
  Serious: No
  Sender: FDA-Public Use
  Company Number: US-SANOFI-AVENTIS-2012SA008061

PATIENT
  Sex: Male

DRUGS (1)
  1. ELIGARD [Suspect]
     Dosage: product started: 6 months ago
     Route: 065
     Dates: start: 2011, end: 2011

REACTIONS (1)
  - Prostatic specific antigen abnormal [Unknown]
